FAERS Safety Report 20748279 (Version 1)
Quarter: 2022Q2

REPORT INFORMATION
  Report Type: Spontaneous
  Country: HR (occurrence: HR)
  Receive Date: 20220426
  Receipt Date: 20220426
  Transmission Date: 20220721
  Serious: Yes (Other)
  Sender: FDA-Public Use
  Company Number: None

PATIENT
  Age: 24 Year
  Sex: Female

DRUGS (3)
  1. KEPPRA [Suspect]
     Active Substance: LEVETIRACETAM
     Indication: Epilepsy
     Dosage: 250MG HALF DAY
     Route: 048
     Dates: start: 20220308, end: 20220316
  2. IBUPROFEN BELUPO [Concomitant]
     Indication: Migraine
     Dosage: UNK
     Route: 048
  3. NAPROXEN SODIUM [Concomitant]
     Active Substance: NAPROXEN SODIUM
     Indication: Migraine
     Dosage: UNK
     Route: 048

REACTIONS (6)
  - Urinary retention [Not Recovered/Not Resolved]
  - Rash [Recovered/Resolved]
  - Blood urine present [Not Recovered/Not Resolved]
  - Renal pain [Not Recovered/Not Resolved]
  - Dizziness [Unknown]
  - Product use issue [Unknown]

NARRATIVE: CASE EVENT DATE: 20220301
